FAERS Safety Report 8660454 (Version 6)
Quarter: 2012Q4

REPORT INFORMATION
  Report Type: 
  Country: US (occurrence: US)
  Receive Date: 20120711
  Receipt Date: 20121218
  Transmission Date: 20130627
  Serious: Yes (Hospitalization, Other)
  Sender: FDA-Public Use
  Company Number: US-009507513-2012SP036941

PATIENT

DRUGS (1)
  1. NUVARING [Suspect]
     Indication: CONTRACEPTION
     Dosage: UNK
     Route: 067
     Dates: start: 201101, end: 201107

REACTIONS (10)
  - Pulmonary embolism [Not Recovered/Not Resolved]
  - Heart rate irregular [Unknown]
  - Sneezing [Unknown]
  - Dysmenorrhoea [Unknown]
  - Palpitations [Not Recovered/Not Resolved]
  - Sleep apnoea syndrome [Unknown]
  - Hernia repair [Unknown]
  - Viral infection [Recovering/Resolving]
  - Dizziness [Unknown]
  - Deep vein thrombosis [Unknown]
